FAERS Safety Report 5034261-5 (Version None)
Quarter: 2006Q2

REPORT INFORMATION
  Report Type: 
  Country: None (occurrence: None)
  Receive Date: 20060626
  Receipt Date: 20060616
  Transmission Date: 20061013
  Serious: Yes (Other)
  Sender: FDA-Public Use
  Company Number: PHBS2006RU08972

PATIENT
  Age: 56 Year
  Sex: Female

DRUGS (1)
  1. MIACALCIN [Suspect]
     Indication: OSTEOPOROSIS
     Dosage: 100 IU/DAY

REACTIONS (3)
  - ANXIETY [None]
  - ERYTHEMA [None]
  - HOT FLUSH [None]
